FAERS Safety Report 12336701 (Version 1)
Quarter: 2016Q2

REPORT INFORMATION
  Report Type: Spontaneous
  Country: US (occurrence: US)
  Receive Date: 20160505
  Receipt Date: 20160505
  Transmission Date: 20160815
  Serious: No
  Sender: FDA-Public Use
  Company Number: US-BAYER-2016-080500

PATIENT
  Age: 60 Year
  Sex: Female
  Weight: 112 kg

DRUGS (2)
  1. LOTRIMIN ULTRA [Suspect]
     Active Substance: BUTENAFINE HYDROCHLORIDE
     Indication: TINEA CRURIS
     Dosage: 1 DF, QD
     Route: 061
     Dates: start: 20160421
  2. LOTRIMIN AF ANTIFUNGAL [Suspect]
     Active Substance: MICONAZOLE NITRATE
     Indication: TINEA CRURIS
     Dosage: 1 DF, ONCE
     Route: 061
     Dates: start: 20160426, end: 20160426

REACTIONS (3)
  - Pain [Unknown]
  - Burning sensation [Unknown]
  - Drug ineffective [None]

NARRATIVE: CASE EVENT DATE: 20160421
